FAERS Safety Report 21914204 (Version 7)
Quarter: 2023Q2

REPORT INFORMATION
  Report Type: Report from Study
  Country: CA (occurrence: CA)
  Receive Date: 20230126
  Receipt Date: 20230527
  Transmission Date: 20230721
  Serious: No
  Sender: FDA-Public Use
  Company Number: CA-002147023-NVSC2020CA015666

PATIENT
  Age: 18 Year
  Sex: Male

DRUGS (2)
  1. AIMOVIG [Suspect]
     Active Substance: ERENUMAB-AOOE
     Indication: Migraine
     Dosage: 140 MILLIGRAM, QMO
     Route: 058
     Dates: start: 20191107
  2. AIMOVIG [Suspect]
     Active Substance: ERENUMAB-AOOE
     Dosage: UNK
     Route: 065
     Dates: start: 20200429

REACTIONS (5)
  - Sleep disorder [Unknown]
  - Somnolence [Unknown]
  - Migraine [Unknown]
  - Headache [Unknown]
  - Hypersensitivity [Unknown]
